FAERS Safety Report 7747715-5 (Version None)
Quarter: 2011Q3

REPORT INFORMATION
  Report Type: 
  Country: None (occurrence: None)
  Receive Date: 20110913
  Receipt Date: 20110905
  Transmission Date: 20111222
  Serious: Yes (Other)
  Sender: FDA-Public Use
  Company Number: PHHY2011TW79322

PATIENT
  Age: 78 Year
  Sex: Female

DRUGS (2)
  1. BEVACIZUMAB [Suspect]
  2. TRIAMCINOLONE ACETONIDE [Suspect]
     Indication: DETACHMENT OF RETINAL PIGMENT EPITHELIUM
     Dosage: 4 MG, UNK

REACTIONS (3)
  - VISUAL IMPAIRMENT [None]
  - RETINAL OEDEMA [None]
  - RETINAL PIGMENT EPITHELIAL TEAR [None]
